FAERS Safety Report 14899574 (Version 1)
Quarter: 2018Q2

REPORT INFORMATION
  Report Type: Spontaneous
  Country: US (occurrence: US)
  Receive Date: 20180516
  Receipt Date: 20180516
  Transmission Date: 20180711
  Serious: Yes (Other)
  Sender: FDA-Public Use
  Company Number: US-ABBVIE-18S-163-2330377-00

PATIENT
  Age: 6 Month
  Sex: Male

DRUGS (3)
  1. SYNTHROID [Suspect]
     Active Substance: LEVOTHYROXINE SODIUM
     Indication: HYPOTHYROIDISM
     Dosage: 1/2 TABLET EVERY OTHER DAY ALTERNATING WITH SYNTHROID 25 MCG
     Route: 048
  2. NEOCATE FORMULA [Concomitant]
     Indication: PRODUCT USED FOR UNKNOWN INDICATION
     Dosage: INFANT FORMULA
     Route: 065
  3. SYNTHROID [Suspect]
     Active Substance: LEVOTHYROXINE SODIUM
     Dosage: 1 TABLET EVERY OTHER DAY ALTERNATING WITH 1/2 TABLET 75MCG ON OTHER DAY
     Route: 048

REACTIONS (1)
  - Gastrointestinal haemorrhage [Not Recovered/Not Resolved]
